FAERS Safety Report 15488915 (Version 1)
Quarter: 2018Q4

REPORT INFORMATION
  Report Type: Spontaneous
  Country: UY (occurrence: UY)
  Receive Date: 20181011
  Receipt Date: 20181011
  Transmission Date: 20190205
  Serious: Yes (Other)
  Sender: FDA-Public Use
  Company Number: UY-PFIZER INC-2018407628

PATIENT
  Age: 10 Year
  Sex: Male

DRUGS (1)
  1. GENOTROPIN [Suspect]
     Active Substance: SOMATROPIN
     Indication: BODY HEIGHT BELOW NORMAL
     Dosage: 1 TO 1.4 MG, DAILY
     Dates: start: 20161017, end: 201803

REACTIONS (1)
  - Dopa-responsive dystonia [Recovering/Resolving]

NARRATIVE: CASE EVENT DATE: 201806
